FAERS Safety Report 6787786-6 (Version None)
Quarter: 2010Q2

REPORT INFORMATION
  Report Type: 
  Country: None (occurrence: None)
  Receive Date: 20100623
  Receipt Date: 20080515
  Transmission Date: 20101027
  Serious: Yes (Hospitalization)
  Sender: FDA-Public Use
  Company Number: US-PFIZER INC-2007065927

PATIENT
  Sex: Female

DRUGS (10)
  1. DEPO-PROVERA SUSPENSION/INJ [Suspect]
     Indication: CONTRACEPTION
  2. PREGABALIN [Concomitant]
     Indication: FIBROMYALGIA
     Dosage: TWICE A DAY
  3. RANITIDINE [Concomitant]
  4. FAMOTIDINE [Concomitant]
  5. TOPAMAX [Concomitant]
     Indication: BIPOLAR DISORDER
     Dosage: TWICE DAILY
  6. WELLBUTRIN XL [Concomitant]
     Indication: DEPRESSION
  7. PAXIL [Concomitant]
     Indication: DEPRESSION
  8. LORATADINE [Concomitant]
  9. ATIVAN [Concomitant]
  10. ULTRAM [Concomitant]
     Dosage: AS NEEDED

REACTIONS (1)
  - PULMONARY EMBOLISM [None]
